FAERS Safety Report 4985862-1 (Version None)
Quarter: 2006Q2

REPORT INFORMATION
  Report Type: 
  Country: None (occurrence: None)
  Receive Date: 20060428
  Receipt Date: 20051026
  Transmission Date: 20061013
  Serious: No
  Sender: FDA-Public Use
  Company Number: US-GLAXOSMITHKLINE-A0579783A

PATIENT
  Age: 40 Year
  Sex: Male

DRUGS (2)
  1. ZOFRAN [Suspect]
     Indication: PROPHYLAXIS OF NAUSEA AND VOMITING
     Dosage: 1UNIT THREE TIMES PER DAY
     Route: 048
     Dates: start: 20050901
  2. PRILOSEC [Concomitant]
     Dosage: 40MG PER DAY
     Route: 048
     Dates: start: 20050927

REACTIONS (2)
  - DRUG INEFFECTIVE [None]
  - NAUSEA [None]
